FAERS Safety Report 7636380-3 (Version None)
Quarter: 2011Q3

REPORT INFORMATION
  Report Type: 
  Country: None (occurrence: None)
  Receive Date: 20110726
  Receipt Date: 20110718
  Transmission Date: 20111222
  Serious: Yes (Hospitalization)
  Sender: FDA-Public Use
  Company Number: CN-GLAXOSMITHKLINE-B0734784A

PATIENT

DRUGS (1)
  1. CEFUROXIME SODIUM [Suspect]
     Indication: PYREXIA
     Route: 042

REACTIONS (3)
  - RASH [None]
  - OEDEMA PERIPHERAL [None]
  - RASH ERYTHEMATOUS [None]
